FAERS Safety Report 22086038 (Version 1)
Quarter: 2023Q1

REPORT INFORMATION
  Report Type: Spontaneous
  Country: US (occurrence: US)
  Receive Date: 20230310
  Receipt Date: 20230310
  Transmission Date: 20230418
  Serious: No
  Sender: FDA-Public Use
  Company Number: US-BRISTOL-MYERS SQUIBB COMPANY-2023-035263

PATIENT
  Age: 76 Year
  Sex: Male
  Weight: 121 kg

DRUGS (1)
  1. REVLIMID [Suspect]
     Active Substance: LENALIDOMIDE
     Indication: Diffuse large B-cell lymphoma
     Dosage: 3W, 1W ON
     Route: 048

REACTIONS (2)
  - Skin laceration [Unknown]
  - Off label use [Unknown]
